FAERS Safety Report 6955385-9 (Version None)
Quarter: 2010Q3

REPORT INFORMATION
  Report Type: 
  Country: None (occurrence: None)
  Receive Date: 20100830
  Receipt Date: 20100628
  Transmission Date: 20110219
  Serious: No
  Sender: FDA-Public Use
  Company Number: US-MYLANLABS-2010S1010454

PATIENT
  Age: 71 Year
  Sex: Female
  Weight: 61.24 kg

DRUGS (6)
  1. LISINOPRIL [Suspect]
     Indication: BLOOD PRESSURE INCREASED
     Route: 048
     Dates: start: 20100410, end: 20100501
  2. LISINOPRIL [Suspect]
     Route: 048
     Dates: start: 20100501
  3. CLONAZEPAM [Concomitant]
     Indication: ANXIETY
     Dates: start: 20000101
  4. DOXYCYCLINE [Concomitant]
     Indication: URINARY TRACT INFECTION
     Dates: start: 20050101
  5. MULTI-VITAMIN [Concomitant]
     Dosage: CAUSES STOMACH UPSET IF TAKEN EVERY DAY
  6. CALCIUM + VITAMIN D [Concomitant]
     Dosage: CAUSES STOMACH UPSET IF TAKEN EVERY DAY

REACTIONS (5)
  - ANXIETY [None]
  - DECREASED APPETITE [None]
  - DIZZINESS [None]
  - INSOMNIA [None]
  - NAUSEA [None]
